FAERS Safety Report 14154992 (Version 1)
Quarter: 2017Q4

REPORT INFORMATION
  Report Type: Spontaneous
  Country: US (occurrence: US)
  Receive Date: 20171103
  Receipt Date: 20171103
  Transmission Date: 20180321
  Serious: No
  Sender: FDA-Public Use
  Company Number: US-CIPLA LTD.-2017US17826

PATIENT

DRUGS (2)
  1. ATORVASTATIN [Suspect]
     Active Substance: ATORVASTATIN
     Dosage: UNK (STRENGTH: UNSPECIFIED, MANUFACTURER: DR REDDY)
     Route: 065
  2. ATORVASTATIN [Suspect]
     Active Substance: ATORVASTATIN
     Dosage: UNK (STRENGTH: 20 MG, MANUFACTURER: CIPLA)
     Route: 065

REACTIONS (4)
  - Product colour issue [Unknown]
  - Oral discomfort [Unknown]
  - Product substitution issue [Unknown]
  - Product odour abnormal [Unknown]
